FAERS Safety Report 9253763 (Version 1)
Quarter: 2013Q2

REPORT INFORMATION
  Report Type: Spontaneous
  Country: US (occurrence: US)
  Receive Date: 20130425
  Receipt Date: 20130425
  Transmission Date: 20140414
  Serious: No
  Sender: FDA-Public Use
  Company Number: US-PFIZER INC-2013127318

PATIENT
  Sex: Female
  Weight: 72.56 kg

DRUGS (3)
  1. LEVOXYL [Suspect]
     Indication: AUTOIMMUNE THYROIDITIS
     Dosage: 75 UG, 1X/DAY
     Dates: start: 2003
  2. LEVOXYL [Suspect]
     Dosage: 88 UG, 1X/DAY
     Dates: start: 2013
  3. VITAMIN D2 [Concomitant]
     Dosage: 50000 IU, WEEKLY

REACTIONS (2)
  - Malaise [Unknown]
  - Drug ineffective [Unknown]
